FAERS Safety Report 18975897 (Version 2)
Quarter: 2021Q1

REPORT INFORMATION
  Report Type: Spontaneous
  Country: GB (occurrence: GB)
  Receive Date: 20210305
  Receipt Date: 20210318
  Transmission Date: 20210420
  Serious: Yes (Hospitalization)
  Sender: FDA-Public Use
  Company Number: GB-009507513-2103GBR000265

PATIENT
  Sex: Female

DRUGS (3)
  1. EMTRICITABINE (+) TENOFOVIR [Suspect]
     Active Substance: EMTRICITABINE\TENOFOVIR
     Dosage: 200/245 OD
  2. DAPSONE. [Suspect]
     Active Substance: DAPSONE
     Dosage: 100 MILLIGRAM ^OD^
  3. ISENTRESS [Suspect]
     Active Substance: RALTEGRAVIR POTASSIUM
     Dosage: 1200 OD
     Route: 048

REACTIONS (1)
  - Adverse event [Unknown]
